FAERS Safety Report 5162199-1 (Version None)
Quarter: 2006Q4

REPORT INFORMATION
  Report Type: 
  Country: None (occurrence: None)
  Receive Date: 20061121
  Receipt Date: 20061114
  Transmission Date: 20070319
  Serious: Yes (Life-Threatening, Hospitalization)
  Sender: FDA-Public Use
  Company Number: DE-2006-035573

PATIENT
  Sex: Male

DRUGS (1)
  1. ULTRAVIST 300 [Suspect]
     Dosage: 1 DOSE

REACTIONS (3)
  - BLOOD PRESSURE DIASTOLIC INCREASED [None]
  - CIRCULATORY COLLAPSE [None]
  - URTICARIA LOCALISED [None]
